FAERS Safety Report 18992274 (Version 1)
Quarter: 2021Q1

REPORT INFORMATION
  Report Type: Spontaneous
  Country: US (occurrence: US)
  Receive Date: 20210310
  Receipt Date: 20210310
  Transmission Date: 20210420
  Serious: No
  Sender: FDA-Public Use
  Company Number: None

PATIENT
  Age: 52 Year
  Sex: Female
  Weight: 112.5 kg

DRUGS (4)
  1. JAKAFI [Suspect]
     Active Substance: RUXOLITINIB
     Indication: MYELOFIBROSIS
     Route: 048
  2. OMEGA?3 ACIDS [Concomitant]
     Active Substance: OMEGA-3 FATTY ACIDS
  3. VITAMIN D3 [Concomitant]
     Active Substance: CHOLECALCIFEROL
  4. FISH OIL [Concomitant]
     Active Substance: FISH OIL

REACTIONS (1)
  - Weight increased [None]
